FAERS Safety Report 18717708 (Version 1)
Quarter: 2021Q1

REPORT INFORMATION
  Report Type: Spontaneous
  Country: US (occurrence: US)
  Receive Date: 20210108
  Receipt Date: 20210108
  Transmission Date: 20210419
  Serious: Yes (Death, Life-Threatening, Hospitalization)
  Sender: FDA-Public Use
  Company Number: None

PATIENT
  Age: 73 Year
  Sex: Male
  Weight: 102 kg

DRUGS (3)
  1. KYMRIAH [Suspect]
     Active Substance: TISAGENLECLEUCEL
     Indication: DIFFUSE LARGE B-CELL LYMPHOMA
     Dosage: ?          OTHER FREQUENCY:ONCE;?
     Route: 042
     Dates: start: 20201214, end: 20201214
  2. CYTOXAN [Concomitant]
     Active Substance: CYCLOPHOSPHAMIDE
     Dates: start: 20201209, end: 20201211
  3. FLUDARA [Concomitant]
     Active Substance: FLUDARABINE PHOSPHATE
     Dates: start: 20201209, end: 20201211

REACTIONS (2)
  - Neurotoxicity [None]
  - Sepsis [None]

NARRATIVE: CASE EVENT DATE: 20201229
